FAERS Safety Report 18249493 (Version 11)
Quarter: 2024Q4

REPORT INFORMATION
  Report Type: Spontaneous
  Country: US (occurrence: US)
  Receive Date: 20200909
  Receipt Date: 20241211
  Transmission Date: 20250114
  Serious: Yes (Disabling, Other)
  Sender: PFIZER
  Company Number: US-PFIZER INC-2020345470

PATIENT
  Age: 67 Year
  Sex: Female
  Weight: 54.43 kg

DRUGS (8)
  1. EUCRISA [Suspect]
     Active Substance: CRISABOROLE
     Indication: Blister
     Dosage: APPLY TO ARMS, HANDS, FACE, TRUNK TWICE A DAY
     Route: 061
  2. EUCRISA [Suspect]
     Active Substance: CRISABOROLE
     Indication: Superficial inflammatory dermatosis
     Dosage: APPLY TO AA BID TO WORST AREAS OF ECZEMA AS MAINTENANCE
     Route: 061
  3. EUCRISA [Suspect]
     Active Substance: CRISABOROLE
     Indication: Asteatosis
  4. EUCRISA [Suspect]
     Active Substance: CRISABOROLE
     Indication: Eczema
  5. EUCRISA [Suspect]
     Active Substance: CRISABOROLE
     Indication: Pruritus
  6. EUCRISA [Suspect]
     Active Substance: CRISABOROLE
     Indication: Dermatitis atopic
  7. VALIUM [Concomitant]
     Active Substance: DIAZEPAM
     Dosage: UNK
  8. FLUOXETINE [Concomitant]
     Active Substance: FLUOXETINE HYDROCHLORIDE
     Dosage: UNK

REACTIONS (18)
  - Gait disturbance [Unknown]
  - Knee operation [Unknown]
  - Therapeutic product effect incomplete [Unknown]
  - Condition aggravated [Unknown]
  - Rash [Not Recovered/Not Resolved]
  - Rash pruritic [Unknown]
  - Exfoliative rash [Unknown]
  - Pain [Not Recovered/Not Resolved]
  - Fall [Unknown]
  - Laryngitis [Unknown]
  - Pharyngitis streptococcal [Unknown]
  - Urticaria [Unknown]
  - Influenza [Unknown]
  - Nasal congestion [Not Recovered/Not Resolved]
  - Skin disorder [Unknown]
  - Viral infection [Recovering/Resolving]
  - Pruritus [Unknown]
  - Cough [Unknown]
